FAERS Safety Report 16011437 (Version 5)
Quarter: 2019Q3

REPORT INFORMATION
  Report Type: Spontaneous
  Country: RU (occurrence: RU)
  Receive Date: 20190227
  Receipt Date: 20190822
  Transmission Date: 20191004
  Serious: Yes (Life-Threatening, Hospitalization, Other)
  Sender: FDA-Public Use
  Company Number: RU-SA-2019SA039583

PATIENT
  Age: 11 Month
  Sex: Male
  Weight: 8 kg

DRUGS (1)
  1. MYOZYME [Suspect]
     Active Substance: ALGLUCOSIDASE ALFA
     Indication: GLYCOGEN STORAGE DISEASE TYPE II
     Dosage: 20 MG/KG, ONCE PER 2 WEEKS (3 BOTTLES EVERY TWO WEEKS)
     Route: 041
     Dates: start: 20180523

REACTIONS (56)
  - Cognitive disorder [Not Recovered/Not Resolved]
  - Rales [Unknown]
  - C-reactive protein increased [Unknown]
  - Myopathy [Not Recovered/Not Resolved]
  - Hypotonia [Not Recovered/Not Resolved]
  - Poor venous access [Unknown]
  - Respiratory disorder [Unknown]
  - Bronchitis [Unknown]
  - Neutrophil count increased [Unknown]
  - Lethargy [Not Recovered/Not Resolved]
  - Dysphagia [Unknown]
  - Aspiration [Not Recovered/Not Resolved]
  - Hypertrophic cardiomyopathy [Unknown]
  - Weight gain poor [Unknown]
  - Functional gastrointestinal disorder [Unknown]
  - Pallor [Not Recovered/Not Resolved]
  - Psychomotor skills impaired [Not Recovered/Not Resolved]
  - Unevaluable event [Unknown]
  - Circulatory collapse [Unknown]
  - Bradycardia [Unknown]
  - Apnoea [Unknown]
  - Tachycardia [Not Recovered/Not Resolved]
  - Dermatitis allergic [Unknown]
  - Developmental delay [Not Recovered/Not Resolved]
  - Hypoxic-ischaemic encephalopathy [Not Recovered/Not Resolved]
  - Pyrexia [Not Recovered/Not Resolved]
  - Tricuspid valve incompetence [Unknown]
  - Hypoventilation [Unknown]
  - Pseudomonas infection [Unknown]
  - Erythema [Recovered/Resolved]
  - Weight decreased [Unknown]
  - Bronchial obstruction [Not Recovered/Not Resolved]
  - Condition aggravated [Not Recovered/Not Resolved]
  - Respiratory failure [Not Recovered/Not Resolved]
  - Supraventricular tachycardia [Not Recovered/Not Resolved]
  - Bronchiolitis [Unknown]
  - Condition aggravated [Unknown]
  - Echocardiogram abnormal [Unknown]
  - Hypochromic anaemia [Unknown]
  - Iron deficiency [Unknown]
  - Emotional disorder [Unknown]
  - Oxygen saturation decreased [Unknown]
  - Arrhythmia [Not Recovered/Not Resolved]
  - Facial paralysis [Not Recovered/Not Resolved]
  - Enzyme level increased [Unknown]
  - Disease progression [Unknown]
  - Regurgitation [Unknown]
  - Cyanosis [Unknown]
  - Nervous system disorder [Unknown]
  - Salivary hypersecretion [Unknown]
  - Dyspnoea [Not Recovered/Not Resolved]
  - Affect lability [Not Recovered/Not Resolved]
  - Pneumonia klebsiella [Unknown]
  - Prolonged expiration [Unknown]
  - Ejection fraction abnormal [Unknown]
  - Tachypnoea [Unknown]

NARRATIVE: CASE EVENT DATE: 20190122
